FAERS Safety Report 14099738 (Version 2)
Quarter: 2017Q4

REPORT INFORMATION
  Report Type: Report from Study
  Country: US (occurrence: US)
  Receive Date: 20171017
  Receipt Date: 20171108
  Transmission Date: 20180321
  Serious: Yes (Other)
  Sender: FDA-Public Use
  Company Number: US-BAYER-2017-151056

PATIENT
  Age: 66 Year
  Sex: Male

DRUGS (8)
  1. STIVARGA [Suspect]
     Active Substance: REGORAFENIB
     Indication: DIFFUSE LARGE B-CELL LYMPHOMA
     Dosage: UNK
     Dates: start: 20170207, end: 2017
  2. STIVARGA [Suspect]
     Active Substance: REGORAFENIB
     Indication: DIFFUSE LARGE B-CELL LYMPHOMA
     Dosage: 160 MG, QD
     Route: 048
     Dates: start: 20170618, end: 20170925
  3. STIVARGA [Suspect]
     Active Substance: REGORAFENIB
     Indication: DIFFUSE LARGE B-CELL LYMPHOMA
     Dosage: 160 MG, DAILY
     Dates: start: 2017
  4. STIVARGA [Suspect]
     Active Substance: REGORAFENIB
     Indication: DIFFUSE LARGE B-CELL LYMPHOMA
     Dosage: 160 MG, QD FOR 21 DAYS, THEN OFF FOR 7 DAYS
     Route: 048
     Dates: start: 20140619
  5. STIVARGA [Suspect]
     Active Substance: REGORAFENIB
     Indication: CONNECTIVE TISSUE NEOPLASM
     Dosage: UNK
     Dates: start: 20140709, end: 20141120
  6. STIVARGA [Suspect]
     Active Substance: REGORAFENIB
     Indication: DIFFUSE LARGE B-CELL LYMPHOMA
     Dosage: UNK
     Dates: start: 20161224, end: 20170130
  7. STIVARGA [Suspect]
     Active Substance: REGORAFENIB
     Indication: GASTROINTESTINAL STROMAL CANCER
     Dosage: UNK
     Dates: start: 20160307, end: 20161215
  8. STIVARGA [Suspect]
     Active Substance: REGORAFENIB
     Indication: SOFT TISSUE NEOPLASM
     Dosage: UNK
     Dates: start: 20141211, end: 20160209

REACTIONS (9)
  - Pain in extremity [None]
  - Impaired healing [None]
  - Adverse drug reaction [None]
  - Fatigue [None]
  - Skin exfoliation [None]
  - Gait disturbance [None]
  - Product use in unapproved indication [None]
  - Blister [None]
  - Off label use [None]

NARRATIVE: CASE EVENT DATE: 201709
